FAERS Safety Report 7128637-X (Version None)
Quarter: 2010Q4

REPORT INFORMATION
  Report Type: 
  Country: None (occurrence: None)
  Receive Date: 20101130
  Receipt Date: 20101122
  Transmission Date: 20110411
  Serious: Yes (Hospitalization)
  Sender: FDA-Public Use
  Company Number: PHHO2010DE17769

PATIENT
  Sex: Male
  Weight: 79.2 kg

DRUGS (1)
  1. STI571/CGP57148B T35717+TAB [Suspect]
     Indication: PULMONARY ARTERIAL HYPERTENSION
     Dosage: DOSE BLIND
     Route: 048
     Dates: start: 20100401

REACTIONS (5)
  - DISEASE PROGRESSION [None]
  - DIZZINESS [None]
  - HYPOTENSION [None]
  - HYPOXIA [None]
  - MALAISE [None]
